FAERS Safety Report 8337710-X (Version None)
Quarter: 2012Q2

REPORT INFORMATION
  Report Type: 
  Country: None (occurrence: None)
  Receive Date: 20120504
  Receipt Date: 20120423
  Transmission Date: 20120825
  Serious: Yes (Hospitalization, Other)
  Sender: FDA-Public Use
  Company Number: FR-JNJFOC-20110203776

PATIENT
  Sex: Female

DRUGS (4)
  1. TOPIRAMATE [Suspect]
     Indication: EPILEPSY
     Route: 048
  2. DEPAKENE [Concomitant]
     Route: 065
     Dates: start: 20000101
  3. TOPIRAMATE [Suspect]
     Dosage: 100 MG IN THE MORNING 150 MG IN THE EVENING
     Route: 048
     Dates: start: 20040101
  4. RISPERDAL [Interacting]
     Indication: PRODUCT USED FOR UNKNOWN INDICATION
     Route: 065

REACTIONS (3)
  - DEPRESSION [None]
  - MENTAL STATUS CHANGES [None]
  - DRUG INTERACTION [None]
